FAERS Safety Report 5209611-7 (Version None)
Quarter: 2006Q4

REPORT INFORMATION
  Report Type: 
  Country: None (occurrence: None)
  Receive Date: 20061122
  Receipt Date: 20051129
  Transmission Date: 20070319
  Serious: Yes (Hospitalization, Disabling)
  Sender: FDA-Public Use
  Company Number: 2005150391

PATIENT
  Age: 60 Year
  Sex: Male

DRUGS (13)
  1. LIPITOR [Suspect]
     Indication: HYPERLIPIDAEMIA
     Dosage: ORAL
     Route: 048
     Dates: start: 20050901
  2. OXYGEN (OXYGEN) [Concomitant]
  3. TESTOSTERONE [Concomitant]
  4. AVANDIA [Concomitant]
  5. METFORMIN HCL [Concomitant]
  6. IRON (IRON) [Concomitant]
  7. ACIPHEX [Concomitant]
  8. MULTIVITAMIN [Concomitant]
  9. VITAMIN C (VITAMIN C) [Concomitant]
  10. VITAMIN E [Concomitant]
  11. CALCIUM (CALCIUM) [Concomitant]
  12. GLUCOSAMINE (GLUCOSAMINE) [Concomitant]
  13. GLUCOSAMINE W/CHONDROITIN SULFATES (ASCORBIC ACID, CHONDROITIN SULFATE [Concomitant]

REACTIONS (1)
  - PANCREATITIS [None]
